FAERS Safety Report 8942227 (Version 1)
Quarter: 2012Q4

REPORT INFORMATION
  Report Type: Spontaneous
  Country: US (occurrence: None)
  Receive Date: 20121129
  Receipt Date: 20121129
  Transmission Date: 20130627
  Serious: Yes (Hospitalization)
  Sender: FDA-Public Use
  Company Number: None

PATIENT
  Age: 81 Year
  Sex: Male

DRUGS (4)
  1. PROTAMINE [Suspect]
     Dosage: 1 time post op
  2. VANCOMYCIN [Concomitant]
  3. ESMOLOL [Concomitant]
  4. NITROGLYCERIN [Concomitant]

REACTIONS (2)
  - Pulse absent [None]
  - Unresponsive to stimuli [None]
